FAERS Safety Report 8203901-1 (Version None)
Quarter: 2012Q1

REPORT INFORMATION
  Report Type: 
  Country: None (occurrence: None)
  Receive Date: 20120313
  Receipt Date: 20120306
  Transmission Date: 20120608
  Serious: Yes (Hospitalization)
  Sender: FDA-Public Use
  Company Number: DE-UCBSA-052921

PATIENT
  Sex: Female
  Weight: 61 kg

DRUGS (4)
  1. PREDNISOLONE [Concomitant]
     Indication: POLYARTHRITIS
     Route: 048
     Dates: start: 20071009
  2. ARAVA [Concomitant]
     Indication: POLYARTHRITIS
     Route: 048
     Dates: start: 20071009
  3. CIMZIA [Suspect]
     Indication: RHEUMATOID ARTHRITIS
     Dosage: SINGLE DOSE:200
     Route: 058
     Dates: start: 20111109
  4. PALEXIA [Concomitant]
     Indication: POLYARTHRITIS
     Route: 048

REACTIONS (1)
  - CORONARY ARTERY DISEASE [None]
